FAERS Safety Report 23841592 (Version 2)
Quarter: 2024Q2

REPORT INFORMATION
  Report Type: Report from Study
  Country: US (occurrence: US)
  Receive Date: 20240510
  Receipt Date: 20240627
  Transmission Date: 20240715
  Serious: No
  Sender: FDA-Public Use
  Company Number: US-ALXN-A202306162

PATIENT
  Age: 60 Year
  Sex: Female

DRUGS (4)
  1. STRENSIQ [Suspect]
     Active Substance: ASFOTASE ALFA
     Indication: Hypophosphatasia
     Dosage: 154 MG, TIW
     Route: 058
     Dates: start: 20230506
  2. STRENSIQ [Suspect]
     Active Substance: ASFOTASE ALFA
     Dosage: 77 MG, TIW
     Route: 058
  3. STRENSIQ [Suspect]
     Active Substance: ASFOTASE ALFA
     Dosage: 1 MILLIGRAM/KILOGRAM, TIW
     Route: 065
  4. BENADRYL [Concomitant]
     Active Substance: DIPHENHYDRAMINE HYDROCHLORIDE
     Indication: Product used for unknown indication
     Dosage: UNK
     Route: 065

REACTIONS (27)
  - Memory impairment [Unknown]
  - Malaise [Unknown]
  - Foot fracture [Recovering/Resolving]
  - Off label use [Unknown]
  - Anxiety [Unknown]
  - Dizziness [Unknown]
  - Tinnitus [Not Recovered/Not Resolved]
  - Bone pain [Unknown]
  - Brain fog [Unknown]
  - Joint instability [Unknown]
  - Head discomfort [Unknown]
  - Product administration error [Unknown]
  - Tension headache [Unknown]
  - Asthma [Unknown]
  - Joint swelling [Recovering/Resolving]
  - Pain [Unknown]
  - Crying [Unknown]
  - Joint dislocation [Unknown]
  - Weight increased [Unknown]
  - Mobility decreased [Unknown]
  - Hot flush [Unknown]
  - Pain in extremity [Not Recovered/Not Resolved]
  - Headache [Unknown]
  - Injection site discolouration [Unknown]
  - Injection site reaction [Not Recovered/Not Resolved]
  - Injection site erythema [Unknown]
  - Injection site pain [Unknown]

NARRATIVE: CASE EVENT DATE: 20230506
